FAERS Safety Report 7513967-X (Version None)
Quarter: 2011Q2

REPORT INFORMATION
  Report Type: 
  Country: None (occurrence: None)
  Receive Date: 20110531
  Receipt Date: 20110524
  Transmission Date: 20111010
  Serious: Yes (Other)
  Sender: FDA-Public Use
  Company Number: CHPA2011US07081

PATIENT
  Age: 92 Year
  Sex: Female

DRUGS (1)
  1. PREVACID 24 HR [Suspect]
     Indication: GASTROINTESTINAL DISORDER
     Dosage: 15 MG, ONCE/SINGLE
     Route: 048
     Dates: start: 20110520, end: 20110520

REACTIONS (7)
  - MALAISE [None]
  - NAUSEA [None]
  - FATIGUE [None]
  - INCORRECT DRUG ADMINISTRATION DURATION [None]
  - HEART RATE INCREASED [None]
  - BLOOD PRESSURE INCREASED [None]
  - OFF LABEL USE [None]
